FAERS Safety Report 7987268-X (Version None)
Quarter: 2011Q4

REPORT INFORMATION
  Report Type: 
  Country: None (occurrence: None)
  Receive Date: 20111216
  Receipt Date: 20110328
  Transmission Date: 20120403
  Serious: No
  Sender: FDA-Public Use
  Company Number: US-BRISTOL-MYERS SQUIBB COMPANY-15640428

PATIENT
  Age: 9 Year
  Sex: Male

DRUGS (4)
  1. CONCERTA [Concomitant]
  2. ABILIFY [Suspect]
     Indication: ATTENTION DEFICIT/HYPERACTIVITY DISORDER
  3. ABILIFY [Suspect]
     Indication: BIPOLAR DISORDER
  4. GUANFACINE HYDROCHLORIDE [Concomitant]

REACTIONS (1)
  - WEIGHT DECREASED [None]
